FAERS Safety Report 9676946 (Version 1)
Quarter: 2013Q4

REPORT INFORMATION
  Report Type: Report from Study
  Country: ES (occurrence: ES)
  Receive Date: 20131108
  Receipt Date: 20131108
  Transmission Date: 20140711
  Serious: Yes (Death)
  Sender: FDA-Public Use
  Company Number: ES-ROCHE-1300381

PATIENT
  Sex: 0

DRUGS (8)
  1. MYCOPHENOLATE MOFETIL [Suspect]
     Indication: PROPHYLAXIS AGAINST TRANSPLANT REJECTION
     Route: 065
  2. TACROLIMUS [Concomitant]
  3. BASILIXIMAB [Concomitant]
     Dosage: DAY 0, 4
     Route: 065
  4. METHYLPREDNISOLONE [Concomitant]
     Dosage: DAY 0
     Route: 042
  5. METHYLPREDNISOLONE [Concomitant]
     Dosage: DAY 1
     Route: 042
  6. PREDNISONE [Concomitant]
     Route: 048
  7. SULFAMETHOXAZOLE/TRIMETHOPRIM [Concomitant]
     Indication: PNEUMOCYSTIS JIROVECII PNEUMONIA
     Route: 065
  8. EVEROLIMUS [Concomitant]

REACTIONS (1)
  - Epstein-Barr virus associated lymphoma [Fatal]
